FAERS Safety Report 8837788 (Version 1)
Quarter: 2012Q4

REPORT INFORMATION
  Report Type: 
  Country: US (occurrence: US)
  Receive Date: 20121012
  Receipt Date: 20121012
  Transmission Date: 20130627
  Serious: No
  Sender: FDA-Public Use
  Company Number: US-GLAXOSMITHKLINE-A0982702A

PATIENT
  Age: 84 Year
  Sex: Male

DRUGS (15)
  1. JALYN [Suspect]
     Indication: BENIGN PROSTATIC HYPERPLASIA
     Dosage: 1CAP Per day
     Route: 048
     Dates: start: 20120624
  2. ALLOPURINOL [Concomitant]
  3. FUROSEMIDE [Concomitant]
  4. LEVOTHYROXINE [Concomitant]
  5. LISINOPRIL [Concomitant]
  6. METFORMIN [Concomitant]
  7. PENTOXIFYLLINE [Concomitant]
  8. PHENYTOIN [Concomitant]
  9. CLOPIDOGREL [Concomitant]
  10. SIMVASTATIN [Concomitant]
  11. KLOR-CON [Concomitant]
  12. ASPIRIN [Concomitant]
  13. FISH OIL [Concomitant]
  14. MULTIVITAMIN [Concomitant]
  15. LOVASTATIN [Concomitant]

REACTIONS (3)
  - Feeling hot [Unknown]
  - Hypersensitivity [Unknown]
  - Drug ineffective [Not Recovered/Not Resolved]
